FAERS Safety Report 9596106 (Version 4)
Quarter: 2013Q4

REPORT INFORMATION
  Report Type: Spontaneous
  Country: US (occurrence: US)
  Receive Date: 20131004
  Receipt Date: 20131120
  Transmission Date: 20140711
  Serious: No
  Sender: FDA-Public Use
  Company Number: US-009507513-1309USA003345

PATIENT
  Age: 15 Year
  Sex: Female
  Weight: 61.68 kg

DRUGS (1)
  1. IMPLANON [Suspect]
     Indication: CONTRACEPTION
     Dosage: 1 ROD EVERY THREE YEARS
     Route: 059
     Dates: start: 20111118, end: 20131107

REACTIONS (7)
  - Haemorrhage [Unknown]
  - Device difficult to use [Recovered/Resolved]
  - Device deployment issue [Recovered/Resolved]
  - Device difficult to use [Recovered/Resolved]
  - Complication of device removal [Recovered/Resolved]
  - Device dislocation [Recovered/Resolved]
  - Medical device complication [Recovered/Resolved]
